FAERS Safety Report 4992258-5 (Version None)
Quarter: 2006Q2

REPORT INFORMATION
  Report Type: 
  Country: None (occurrence: None)
  Receive Date: 20060504
  Receipt Date: 20060425
  Transmission Date: 20061013
  Serious: Yes (Other)
  Sender: FDA-Public Use
  Company Number: BR-ROCHE-445891

PATIENT
  Age: 52 Year
  Sex: Female
  Weight: 76 kg

DRUGS (1)
  1. RIVOTRIL [Suspect]
     Route: 048
     Dates: start: 20060415, end: 20060423

REACTIONS (8)
  - DELIRIUM [None]
  - DIFFICULTY IN WALKING [None]
  - DIZZINESS [None]
  - MEMORY IMPAIRMENT [None]
  - NAUSEA [None]
  - PAIN IN EXTREMITY [None]
  - SNORING [None]
  - SOMNOLENCE [None]
